FAERS Safety Report 21923867 (Version 1)
Quarter: 2023Q1

REPORT INFORMATION
  Report Type: Spontaneous
  Country: NL (occurrence: NL)
  Receive Date: 20230130
  Receipt Date: 20230130
  Transmission Date: 20230418
  Serious: Yes (Life-Threatening, Hospitalization, Other)
  Sender: FDA-Public Use
  Company Number: None

PATIENT
  Sex: Male
  Weight: 92 kg

DRUGS (6)
  1. AMIODARONE [Suspect]
     Active Substance: AMIODARONE
     Indication: Atrial fibrillation
     Dosage: 200 MILLIGRAM DAILY; 1X PER DAY 1 PIECE ,BRAND NAME NOT SPECIFIED ,
     Dates: start: 20160201, end: 20210920
  2. METOPROLOL SUCCINATE [Concomitant]
     Active Substance: METOPROLOL SUCCINATE
     Indication: Product used for unknown indication
     Dosage: 50 MG (MILLIGRAM),MGA,BRAND NAME NOT SPECIFIED ,
  3. PANTOPRAZOLE SODIUM [Concomitant]
     Active Substance: PANTOPRAZOLE SODIUM
     Indication: Product used for unknown indication
     Dosage: 20 MG (MILLIGRAM),MSR BRAND NAME NOT SPECIFIED ,
  4. ROSUVASTATIN [Concomitant]
     Active Substance: ROSUVASTATIN
     Indication: Product used for unknown indication
     Dosage: 10 MG (MILLIGRAM),BRAND NAME NOT SPECIFIED ,
  5. POLYETHYLENE GLYCOLS [Concomitant]
     Active Substance: POLYETHYLENE GLYCOLS
     Indication: Product used for unknown indication
     Dosage: POWDER FOR DRINK ,10 G (GRAM),BRAND NAME NOT SPECIFIED,
  6. PERINDOPRIL ERBUMINE [Concomitant]
     Active Substance: PERINDOPRIL ERBUMINE
     Indication: Product used for unknown indication
     Dosage: 2 MG (MILLIGRAM), BRAND NAME NOT SPECIFIED,

REACTIONS (2)
  - Thyroiditis [Recovering/Resolving]
  - Hypothyroidism [Recovering/Resolving]
